FAERS Safety Report 19397947 (Version 3)
Quarter: 2021Q3

REPORT INFORMATION
  Report Type: Report from Study
  Country: US (occurrence: US)
  Receive Date: 20210610
  Receipt Date: 20210804
  Transmission Date: 20211014
  Serious: Yes (Other)
  Sender: FDA-Public Use
  Company Number: US-BRISTOL-MYERS SQUIBB COMPANY-BMS-2021-055979

PATIENT
  Age: 74 Year
  Sex: Female
  Weight: 47.6 kg

DRUGS (3)
  1. APIXABAN [Suspect]
     Active Substance: APIXABAN
     Indication: DEEP VEIN THROMBOSIS
     Dosage: 10 MILLIGRAM, BID FOR ONE WEEK
     Route: 048
     Dates: start: 20210617
  2. CLONAZEPAM. [Concomitant]
     Active Substance: CLONAZEPAM
     Indication: PRODUCT USED FOR UNKNOWN INDICATION
     Route: 065
  3. APIXABAN [Suspect]
     Active Substance: APIXABAN
     Dosage: 5 MILLIGRAM, BID FOR 90 DAYS
     Route: 048

REACTIONS (2)
  - Head injury [Unknown]
  - Limb discomfort [Unknown]

NARRATIVE: CASE EVENT DATE: 202107
